FAERS Safety Report 19169875 (Version 1)
Quarter: 2021Q2

REPORT INFORMATION
  Report Type: Other
  Country: CA (occurrence: CA)
  Receive Date: 20210422
  Receipt Date: 20210422
  Transmission Date: 20210717
  Serious: Yes (Other)
  Sender: FDA-Public Use
  Company Number: CA-APOTEX-2021AP010020

PATIENT
  Age: 60 Year
  Sex: Male

DRUGS (6)
  1. KETAMINE [Suspect]
     Active Substance: KETAMINE
     Indication: PAIN MANAGEMENT
     Dosage: UNK
     Route: 065
  2. NORTRIPTYLINE [Suspect]
     Active Substance: NORTRIPTYLINE
     Indication: PAIN MANAGEMENT
     Dosage: UNK
     Route: 065
  3. METOCLOPRAMIDE. [Suspect]
     Active Substance: METOCLOPRAMIDE
     Indication: PAIN MANAGEMENT
     Dosage: UNK
     Route: 065
  4. KETAMINE [Suspect]
     Active Substance: KETAMINE
     Indication: MUSCULOSKELETAL PAIN
  5. GABAPENTIN. [Suspect]
     Active Substance: GABAPENTIN
     Indication: PAIN MANAGEMENT
     Dosage: UNK
     Route: 065
  6. BACLOFEN. [Suspect]
     Active Substance: BACLOFEN
     Indication: PAIN MANAGEMENT
     Dosage: UNK
     Route: 065

REACTIONS (4)
  - Drug ineffective [Recovered/Resolved]
  - Delirium [Recovered/Resolved]
  - Off label use [Recovered/Resolved]
  - Sedation [Recovered/Resolved]
